FAERS Safety Report 7967232-7 (Version None)
Quarter: 2011Q4

REPORT INFORMATION
  Report Type: 
  Country: None (occurrence: None)
  Receive Date: 20111206
  Receipt Date: 20111121
  Transmission Date: 20120403
  Serious: Yes (Other)
  Sender: FDA-Public Use
  Company Number: 2011-4740

PATIENT
  Age: 70 Year
  Sex: Male
  Weight: 104.3 kg

DRUGS (12)
  1. LANTUS [Concomitant]
  2. ASPIRIN (ACETYOSALICYLIC ACID) [Concomitant]
  3. ATIVAN [Concomitant]
  4. AMBIEN CR [Concomitant]
  5. LIPITOR [Concomitant]
  6. SOMATULINE DEPOT [Suspect]
     Indication: ACROMEGALY
     Dosage: 60;90;120 MG (60;90;120 MG, 1 IN 28 D)
     Dates: start: 20111031
  7. SOMATULINE DEPOT [Suspect]
     Indication: ACROMEGALY
     Dosage: 60;90;120 MG (60;90;120 MG, 1 IN 28 D)
     Dates: start: 20110428, end: 20110701
  8. SOMATULINE DEPOT [Suspect]
     Indication: ACROMEGALY
     Dosage: 60;90;120 MG (60;90;120 MG, 1 IN 28 D)
     Dates: start: 20110701, end: 20111030
  9. CELEBREX [Concomitant]
  10. SKELAXIN [Concomitant]
  11. LORTAB [Concomitant]
  12. MOVE FREE (GLUCOSAMINE W/CHONDROITIN) [Concomitant]

REACTIONS (4)
  - HYPERTHYROIDISM [None]
  - BLOOD GLUCOSE DECREASED [None]
  - PITUITARY TUMOUR RECURRENT [None]
  - MUSCLE SPASMS [None]
